FAERS Safety Report 4480491-0 (Version None)
Quarter: 2004Q4

REPORT INFORMATION
  Report Type: 
  Country: None (occurrence: None)
  Receive Date: 20041018
  Receipt Date: 20041004
  Transmission Date: 20050328
  Serious: Yes (Hospitalization)
  Sender: FDA-Public Use
  Company Number: 2004-04309

PATIENT
  Age: 53 Year
  Sex: Male
  Weight: 86.2 kg

DRUGS (1)
  1. PREDNISONE [Suspect]
     Indication: RHEUMATOID ARTHRITIS
     Dosage: 20 MG, DAILY, ORAL
     Route: 048
     Dates: start: 20030101, end: 20041003

REACTIONS (5)
  - ABDOMINAL PAIN [None]
  - COELIAC DISEASE [None]
  - CONDITION AGGRAVATED [None]
  - DIARRHOEA [None]
  - MALABSORPTION [None]
